FAERS Safety Report 21562103 (Version 1)
Quarter: 2022Q4

REPORT INFORMATION
  Report Type: Spontaneous
  Country: US (occurrence: None)
  Receive Date: 20221106
  Receipt Date: 20221106
  Transmission Date: 20230112
  Serious: No
  Sender: FDA-Public Use
  Company Number: None

PATIENT
  Sex: Male
  Weight: 112.5 kg

DRUGS (5)
  1. MOUNJARO [Suspect]
     Active Substance: TIRZEPATIDE
  2. DESVENLAFAXINE [Concomitant]
     Active Substance: DESVENLAFAXINE
  3. PANTOPRAZOLE [Concomitant]
     Active Substance: PANTOPRAZOLE
  4. FIBER [Concomitant]
     Active Substance: PSYLLIUM HUSK
  5. men^s vitamins [Concomitant]

REACTIONS (8)
  - Weight decreased [None]
  - Constipation [None]
  - Vision blurred [None]
  - Abdominal pain [None]
  - Abdominal tenderness [None]
  - Eructation [None]
  - Hyperhidrosis [None]
  - Dyschezia [None]
